FAERS Safety Report 4457317-4 (Version None)
Quarter: 2004Q3

REPORT INFORMATION
  Report Type: 
  Country: None (occurrence: None)
  Receive Date: 20040921
  Receipt Date: 20040902
  Transmission Date: 20050211
  Serious: Yes (Hospitalization)
  Sender: FDA-Public Use
  Company Number: B0344153A

PATIENT
  Age: 90 Year
  Sex: Female
  Weight: 60.8727 kg

DRUGS (9)
  1. PAXIL [Suspect]
     Indication: DEPRESSION
     Dosage: 20 MG/ PER DAY/ORAL
     Route: 048
     Dates: start: 20040728, end: 20040802
  2. INDAPAMIDE (INDAPAMIDE0 [Suspect]
     Indication: HYPERTENSION
     Dosage: 1 UNIT/PER DAY/ORAL
     Route: 048
     Dates: end: 20040802
  3. AMOXICILLIN TRIHYDRATE [Concomitant]
  4. LORAZEPAM [Concomitant]
  5. BISOLVON [Concomitant]
  6. POTASSIUM CHLORIDE [Concomitant]
  7. PARACETAMOL [Concomitant]
  8. OMEPRAZOLE [Concomitant]
  9. DOMPERIDONE [Concomitant]

REACTIONS (11)
  - ASTHENIA [None]
  - DRUG INTERACTION [None]
  - EXTRAPYRAMIDAL DISORDER [None]
  - FACE INJURY [None]
  - FALL [None]
  - HYPONATRAEMIA [None]
  - HYPOREFLEXIA [None]
  - MARKEDLY REDUCED DIETARY INTAKE [None]
  - OLIGODIPSIA [None]
  - PRODUCTIVE COUGH [None]
  - RALES [None]
